FAERS Safety Report 24249461 (Version 2)
Quarter: 2024Q4

REPORT INFORMATION
  Report Type: Report from Study
  Country: US (occurrence: US)
  Receive Date: 20240826
  Receipt Date: 20241004
  Transmission Date: 20250115
  Serious: Yes (Other)
  Sender: PFIZER
  Company Number: US-PFIZER INC-PV202400051283

PATIENT
  Age: 68 Year
  Sex: Female

DRUGS (9)
  1. IBRANCE [Suspect]
     Active Substance: PALBOCICLIB
     Indication: Breast cancer female
     Dosage: 100 MG, CYCLIC (1 TABLET DAILY FOR 21 DAYS OF A 28 DAY CYCLE)
     Route: 048
     Dates: start: 20240409
  2. IBRANCE [Suspect]
     Active Substance: PALBOCICLIB
     Dosage: 75 MG, CYCLIC (1 TABLET BY MOUTH DAILY FOR 21 DAYS OF A 28 DAY CYCLE)
     Route: 048
     Dates: start: 20240409
  3. IBRANCE [Suspect]
     Active Substance: PALBOCICLIB
     Dosage: 75 MG, CYCLIC (1 TABLET FOR 2 WEEKS, OFF FOR 1 WEEK)
     Route: 048
     Dates: start: 20240409
  4. IBRANCE [Suspect]
     Active Substance: PALBOCICLIB
     Dosage: 75 MG
     Dates: start: 20240514
  5. IBRANCE [Suspect]
     Active Substance: PALBOCICLIB
     Dosage: 75 MG, CYCLIC ( 1 TABLET BY MOUTH DAILY FOR 2 WEEKS, OFF FOR 1 WEEK)
     Route: 048
     Dates: start: 2024
  6. FULVESTRANT [Suspect]
     Active Substance: FULVESTRANT
     Indication: Full blood count decreased
     Dosage: STARTING DOSE 100 MG
  7. FULVESTRANT [Suspect]
     Active Substance: FULVESTRANT
     Dosage: 75 MG
     Dates: start: 20240514
  8. EXEMESTANE [Concomitant]
     Active Substance: EXEMESTANE
     Dosage: UNK
  9. ELIQUIS [Concomitant]
     Active Substance: APIXABAN
     Dosage: UNK

REACTIONS (17)
  - Thrombosis [Not Recovered/Not Resolved]
  - Pneumonia [Unknown]
  - Radiation pneumonitis [Recovering/Resolving]
  - Diarrhoea [Recovering/Resolving]
  - Dry mouth [Recovering/Resolving]
  - Full blood count decreased [Unknown]
  - Condition aggravated [Unknown]
  - Abdominal discomfort [Not Recovered/Not Resolved]
  - White blood cell count decreased [Recovered/Resolved]
  - Taste disorder [Not Recovered/Not Resolved]
  - Inflammation [Unknown]
  - Fatigue [Not Recovered/Not Resolved]
  - Swelling [Not Recovered/Not Resolved]
  - Renal function test abnormal [Unknown]
  - Liver function test abnormal [Unknown]
  - Alopecia [Not Recovered/Not Resolved]
  - Off label use [Unknown]

NARRATIVE: CASE EVENT DATE: 20240401
